FAERS Safety Report 24034739 (Version 2)
Quarter: 2024Q3

REPORT INFORMATION
  Report Type: Spontaneous
  Country: IT (occurrence: IT)
  Receive Date: 20240701
  Receipt Date: 20240731
  Transmission Date: 20241017
  Serious: Yes (Other)
  Sender: TEVA
  Company Number: None

PATIENT
  Age: 73 Year
  Sex: Male
  Weight: 73 kg

DRUGS (3)
  1. EPIRUBICIN [Suspect]
     Active Substance: EPIRUBICIN
     Indication: Soft tissue sarcoma
     Dosage: EPIRUBICIN HYDROCHLORIDE
     Route: 042
     Dates: start: 20240513, end: 20240513
  2. IFOSFAMIDE [Suspect]
     Active Substance: IFOSFAMIDE
     Indication: Soft tissue sarcoma
     Dosage: 5000MG IN PUMP 4 DAYS
     Route: 042
     Dates: start: 20240513, end: 20240516
  3. MESNA [Suspect]
     Active Substance: MESNA
     Indication: Prophylaxis
     Dosage: 5000MG IN PUMP 4 DAYS TOGETHER WITH IFOSFAMIDE
     Route: 042
     Dates: start: 20240513, end: 20240516

REACTIONS (1)
  - Neutropenia [Recovered/Resolved]

NARRATIVE: CASE EVENT DATE: 20240530
